FAERS Safety Report 12059427 (Version 1)
Quarter: 2016Q1

REPORT INFORMATION
  Report Type: Spontaneous
  Country: US (occurrence: None)
  Receive Date: 20160209
  Receipt Date: 20160209
  Transmission Date: 20160526
  Serious: Yes (Other)
  Sender: FDA-Public Use
  Company Number: None

PATIENT
  Age: 35 Year
  Sex: Female
  Weight: 57.15 kg

DRUGS (5)
  1. KLONOPIN [Concomitant]
     Active Substance: CLONAZEPAM
  2. OMEGA 3-6-9 FISH, FLAX + BORAGE OIL [Concomitant]
  3. CALCITROL (CALCIUM AND VITAMIN D3 COMBO) [Concomitant]
  4. EFFEXOR XR [Concomitant]
     Active Substance: VENLAFAXINE HYDROCHLORIDE
  5. SEROQUEL [Suspect]
     Active Substance: QUETIAPINE FUMARATE
     Indication: MAJOR DEPRESSION
     Dosage: ABT 4 YEARS (ON AND OFF) 1 TABLET ONCE DAILY TAKEN BY MOUTH
     Route: 048

REACTIONS (4)
  - Electrocardiogram QT prolonged [None]
  - Feeling abnormal [None]
  - Blood potassium decreased [None]
  - Heart rate abnormal [None]

NARRATIVE: CASE EVENT DATE: 20160201
